FAERS Safety Report 11331606 (Version 1)
Quarter: 2015Q3

REPORT INFORMATION
  Report Type: Spontaneous
  Country: JP (occurrence: JP)
  Receive Date: 20150803
  Receipt Date: 20150803
  Transmission Date: 20151125
  Serious: Yes (Hospitalization, Other)
  Sender: FDA-Public Use
  Company Number: JP-MYLANLABS-2015M1025025

PATIENT

DRUGS (3)
  1. PREDNISOLONE TABLETS 1^HOEI^ [Suspect]
     Active Substance: PREDNISOLONE
     Indication: PEMPHIGOID
     Dosage: 30 MG, QD
     Route: 048
  2. PREDNISOLONE TABLETS 1^HOEI^ [Suspect]
     Active Substance: PREDNISOLONE
     Dosage: 25 MG, QD
     Route: 048
  3. PREDNISOLONE TABLETS 1^HOEI^ [Suspect]
     Active Substance: PREDNISOLONE
     Dosage: 10 MG, QD
     Route: 048

REACTIONS (6)
  - Rash [Unknown]
  - Depressed level of consciousness [Recovering/Resolving]
  - Ecthyma [Unknown]
  - Staphylococcal infection [Unknown]
  - Substance-induced psychotic disorder [Unknown]
  - Pseudomonas infection [Unknown]
